FAERS Safety Report 8267073 (Version 2)
Quarter: 2014Q3

REPORT INFORMATION
  Report Type: Spontaneous
  Country: US (occurrence: US)
  Receive Date: 20111129
  Receipt Date: 20140822
  Transmission Date: 20150326
  Serious: Yes (Death)
  Sender: FDA-Public Use
  Company Number: US-GLAXOSMITHKLINE-A0795865A

PATIENT
  Sex: Female

DRUGS (1)
  1. AVANDAMET [Suspect]
     Active Substance: METFORMIN HYDROCHLORIDE\ROSIGLITAZONE MALEATE
     Indication: DIABETES MELLITUS
     Route: 048
     Dates: start: 200403, end: 20050902

REACTIONS (4)
  - Atrial flutter [Unknown]
  - Atrial fibrillation [Unknown]
  - Myocardial infarction [Fatal]
  - Cardio-respiratory arrest [Fatal]
